FAERS Safety Report 8470173-2 (Version None)
Quarter: 2012Q2

REPORT INFORMATION
  Report Type: 
  Country: None (occurrence: None)
  Receive Date: 20120621
  Receipt Date: 20120621
  Transmission Date: 20120825
  Serious: Yes (Other)
  Sender: FDA-Public Use
  Company Number: None

PATIENT
  Sex: Female
  Weight: 120.2032 kg

DRUGS (1)
  1. OXCARBAZEPINE [Suspect]
     Indication: CONVULSION
     Dosage: 1 1/2 TABLET TWICE DAILY
     Dates: start: 20120510, end: 20120620

REACTIONS (3)
  - DRUG DISPENSING ERROR [None]
  - DYSKINESIA [None]
  - PRODUCT COMMINGLING [None]
